FAERS Safety Report 5042989-6 (Version None)
Quarter: 2006Q2

REPORT INFORMATION
  Report Type: 
  Country: None (occurrence: None)
  Receive Date: 20060628
  Receipt Date: 20060619
  Transmission Date: 20061013
  Serious: Yes (Hospitalization, Other)
  Sender: FDA-Public Use
  Company Number: USA-2006-0024274

PATIENT
  Age: 47 Year
  Sex: Male
  Weight: 73.5 kg

DRUGS (4)
  1. MS CONTIN [Suspect]
     Indication: BACK PAIN
     Dosage: 15 MG, Q12H, ORAL
     Route: 048
     Dates: start: 20040624, end: 20040627
  2. MONOPRIL [Concomitant]
  3. LOPIDO (GEMFIBROZIL) [Concomitant]
  4. BISACODYL [Concomitant]

REACTIONS (10)
  - ANXIETY [None]
  - ASTHENIA [None]
  - BLOOD PRESSURE DECREASED [None]
  - CHEST DISCOMFORT [None]
  - CHEST PAIN [None]
  - DYSPNOEA [None]
  - NERVOUSNESS [None]
  - POST-TRAUMATIC STRESS DISORDER [None]
  - RESPIRATORY DEPRESSION [None]
  - RESPIRATORY FAILURE [None]
